FAERS Safety Report 12204816 (Version 1)
Quarter: 2016Q1

REPORT INFORMATION
  Report Type: Spontaneous
  Country: US (occurrence: None)
  Receive Date: 20160322
  Receipt Date: 20160322
  Transmission Date: 20160526
  Serious: Yes (Hospitalization)
  Sender: FDA-Public Use
  Company Number: None

PATIENT
  Age: 57 Year
  Sex: Male

DRUGS (1)
  1. LISINOPRIL 10 MG [Suspect]
     Active Substance: LISINOPRIL
     Dosage: 10 MG X10

REACTIONS (2)
  - Chronic obstructive pulmonary disease [None]
  - Hyperkalaemia [None]

NARRATIVE: CASE EVENT DATE: 20150127
